FAERS Safety Report 7335251-X (Version None)
Quarter: 2011Q1

REPORT INFORMATION
  Report Type: 
  Country: None (occurrence: None)
  Receive Date: 20110307
  Receipt Date: 20110302
  Transmission Date: 20110831
  Serious: Yes (Other)
  Sender: FDA-Public Use
  Company Number: US-PFIZER INC-2011046428

PATIENT
  Sex: Female
  Weight: 48.073 kg

DRUGS (2)
  1. LYRICA [Suspect]
     Indication: COMPLEX REGIONAL PAIN SYNDROME
     Dosage: 75MG FIVE TIMES DAILY
     Route: 048
     Dates: start: 20070101, end: 20070101
  2. TIMOLOL [Concomitant]
     Indication: COMPLEX REGIONAL PAIN SYNDROME
     Dosage: UNK

REACTIONS (6)
  - WEIGHT INCREASED [None]
  - CONSTIPATION [None]
  - OEDEMA PERIPHERAL [None]
  - BLOOD URINE PRESENT [None]
  - PAIN [None]
  - AMNESIA [None]
